FAERS Safety Report 20484129 (Version 1)
Quarter: 2022Q1

REPORT INFORMATION
  Report Type: Spontaneous
  Country: US (occurrence: US)
  Receive Date: 20220217
  Receipt Date: 20220217
  Transmission Date: 20220423
  Serious: Yes (Hospitalization)
  Sender: FDA-Public Use
  Company Number: US-STRIDES ARCOLAB LIMITED-2022SP001398

PATIENT
  Sex: Female

DRUGS (9)
  1. CISPLATIN [Suspect]
     Active Substance: CISPLATIN
     Indication: Metastatic choriocarcinoma
     Dosage: UNK, 2 CYCLES, IN A COMBINATION WITH PACLITAXEL; ALTERNATING WITH PACLITAXEL AND ETOPOSIDE COMBINATI
     Route: 065
  2. ETOPOSIDE [Suspect]
     Active Substance: ETOPOSIDE
     Indication: Metastatic choriocarcinoma
     Dosage: UNK, SEVEN CYCLES
     Route: 065
  3. ETOPOSIDE [Suspect]
     Active Substance: ETOPOSIDE
     Dosage: UNK, 2 CYCLES, IN A COMBINATION WITH PACLITAXEL; ALTERNATING WITH PACLITAXEL AND CISPLATIN COMBINATI
     Route: 065
  4. METHOTREXATE [Suspect]
     Active Substance: METHOTREXATE
     Indication: Choriocarcinoma
     Dosage: UNK, SEVEN CYCLES, EMA-CO REGIMEN
     Route: 065
  5. PACLITAXEL [Suspect]
     Active Substance: PACLITAXEL
     Indication: Metastatic choriocarcinoma
     Dosage: UNK, 2 CYCLES, IN A COMBINATION WITH CISPLATIN AND ETOPOSIDE
     Route: 065
  6. PACLITAXEL [Suspect]
     Active Substance: PACLITAXEL
     Dosage: UNK
     Route: 065
  7. DACTINOMYCIN [Concomitant]
     Active Substance: DACTINOMYCIN
     Indication: Choriocarcinoma
     Dosage: UNK, SEVEN CYCLES, EMA-CO REGIMEN
     Route: 065
  8. CYCLOPHOSPHAMIDE [Concomitant]
     Active Substance: CYCLOPHOSPHAMIDE
     Indication: Choriocarcinoma
     Dosage: UNK, SEVEN CYCLES, EMA-CO REGIMEN
     Route: 065
  9. VINCRISTINE [Concomitant]
     Active Substance: VINCRISTINE
     Indication: Choriocarcinoma
     Dosage: UNK, SEVEN CYCLES, EMA-CO REGIMEN
     Route: 065

REACTIONS (2)
  - Acute kidney injury [Unknown]
  - Off label use [Unknown]
